FAERS Safety Report 4289012-9 (Version None)
Quarter: 2004Q1

REPORT INFORMATION
  Report Type: 
  Country: None (occurrence: None)
  Receive Date: 20040203
  Receipt Date: 20030930
  Transmission Date: 20041129
  Serious: Yes (Death)
  Sender: FDA-Public Use
  Company Number: 03P-163-0234449-00

PATIENT
  Age: 30 Year
  Sex: Male

DRUGS (1)
  1. VICODIN [Suspect]

REACTIONS (1)
  - OVERDOSE [None]
